FAERS Safety Report 13133844 (Version 1)
Quarter: 2017Q1

REPORT INFORMATION
  Report Type: Spontaneous
  Country: US (occurrence: US)
  Receive Date: 20170120
  Receipt Date: 20170120
  Transmission Date: 20170428
  Serious: No
  Sender: FDA-Public Use
  Company Number: US-OTSUKA-2016_029215

PATIENT

DRUGS (8)
  1. MELATONIN [Suspect]
     Active Substance: MELATONIN
     Indication: PRODUCT USED FOR UNKNOWN INDICATION
     Dosage: UNK
     Route: 065
  2. ABILIFY [Concomitant]
     Active Substance: ARIPIPRAZOLE
     Indication: PRODUCT USED FOR UNKNOWN INDICATION
     Dosage: 2.0 UNK, UNK
     Route: 065
  3. INVEGA [Suspect]
     Active Substance: PALIPERIDONE
     Indication: PRODUCT USED FOR UNKNOWN INDICATION
     Dosage: UNK
     Route: 065
  4. NICOTINE. [Concomitant]
     Active Substance: NICOTINE
     Indication: PRODUCT USED FOR UNKNOWN INDICATION
     Dosage: UNK
     Route: 065
  5. XANAX [Concomitant]
     Active Substance: ALPRAZOLAM
     Indication: AKATHISIA
     Dosage: UNK
     Route: 065
  6. REXULTI [Suspect]
     Active Substance: BREXPIPRAZOLE
     Indication: PRODUCT USED FOR UNKNOWN INDICATION
     Dosage: 2 MG, UNK
     Route: 065
  7. REXULTI [Suspect]
     Active Substance: BREXPIPRAZOLE
     Dosage: 4 MG, UNK
     Route: 065
  8. REXULTI [Suspect]
     Active Substance: BREXPIPRAZOLE
     Dosage: 3 MG, UNK
     Route: 065

REACTIONS (9)
  - Muscle twitching [Unknown]
  - Feeling abnormal [Unknown]
  - Weight decreased [Unknown]
  - Myalgia [Unknown]
  - Back pain [Unknown]
  - Pain [Unknown]
  - Decreased appetite [Unknown]
  - Pain in extremity [Unknown]
  - Musculoskeletal pain [Unknown]
